FAERS Safety Report 20668759 (Version 1)
Quarter: 2022Q2

REPORT INFORMATION
  Report Type: Spontaneous
  Country: US (occurrence: None)
  Receive Date: 20220402
  Receipt Date: 20220402
  Transmission Date: 20220720
  Serious: No
  Sender: FDA-Public Use
  Company Number: None

PATIENT
  Age: 83 Year
  Sex: Male
  Weight: 81 kg

DRUGS (23)
  1. ABIRATERONE [Suspect]
     Active Substance: ABIRATERONE
     Indication: Prostate cancer
     Dosage: FREQUENCY : DAILY;?
     Route: 048
     Dates: start: 20220105
  2. PREDNISONE [Suspect]
     Active Substance: PREDNISONE
     Indication: Prostate cancer
     Dosage: FREQUENCY : TWICE A DAY;?
     Route: 048
     Dates: start: 20220105
  3. ATENOLOL [Concomitant]
     Active Substance: ATENOLOL
  4. CETIRIZINE [Concomitant]
     Active Substance: CETIRIZINE HYDROCHLORIDE
  5. COZAAR [Concomitant]
     Active Substance: LOSARTAN POTASSIUM
  6. VITAMINS [Concomitant]
     Active Substance: VITAMINS
  7. Detrol 2mg [Concomitant]
  8. ELIQUIS [Concomitant]
     Active Substance: APIXABAN
  9. Flomax 0.4mg [Concomitant]
  10. FUROSEMIDE [Concomitant]
     Active Substance: FUROSEMIDE
  11. LEVOTHYROXINE [Concomitant]
     Active Substance: LEVOTHYROXINE
  12. Magnesium oxide 500mg [Concomitant]
  13. MEGACE ES [Concomitant]
     Active Substance: MEGESTROL ACETATE
  14. Potassium Chloride 8mEq [Concomitant]
  15. ZOCOR [Concomitant]
     Active Substance: SIMVASTATIN
  16. MELATONIN [Concomitant]
     Active Substance: MELATONIN
  17. VITAMIN D [Concomitant]
     Active Substance: VITAMIN D NOS
  18. GLUCOSAMINE [Concomitant]
     Active Substance: GLUCOSAMINE
  19. LUPRON DEPOT [Concomitant]
     Active Substance: LEUPROLIDE ACETATE
  20. BICALUTAMIDE [Concomitant]
     Active Substance: BICALUTAMIDE
  21. XGEVA [Concomitant]
     Active Substance: DENOSUMAB
  22. PERCOCET [Concomitant]
     Active Substance: ACETAMINOPHEN\OXYCODONE HYDROCHLORIDE
  23. CYTOMEL [Concomitant]
     Active Substance: LIOTHYRONINE SODIUM

REACTIONS (1)
  - Blood pressure increased [None]

NARRATIVE: CASE EVENT DATE: 20220401
